FAERS Safety Report 9270638 (Version 1)
Quarter: 2013Q2

REPORT INFORMATION
  Report Type: Spontaneous
  Country: BR (occurrence: BR)
  Receive Date: 20130506
  Receipt Date: 20130506
  Transmission Date: 20140414
  Serious: Yes (Hospitalization)
  Sender: FDA-Public Use
  Company Number: BR-AMGEN-BRASP2013031052

PATIENT
  Age: 69 Year
  Sex: Female
  Weight: 58 kg

DRUGS (3)
  1. ENBREL [Suspect]
     Indication: RHEUMATOID ARTHRITIS
     Dosage: 50 MG, 1X/WEEK
     Dates: start: 201109, end: 201209
  2. ENALAPRIL [Concomitant]
     Indication: HYPERTENSION
     Dosage: STRENGTH 20 MG
  3. CAPTOPRIL [Concomitant]
     Indication: HYPERTENSION
     Dosage: STRENGTH 12.5 MG

REACTIONS (1)
  - Arthropathy [Unknown]
